FAERS Safety Report 15590690 (Version 1)
Quarter: 2018Q4

REPORT INFORMATION
  Report Type: Spontaneous
  Country: US (occurrence: US)
  Receive Date: 20181101
  Receipt Date: 20181101
  Transmission Date: 20190205
  Serious: No
  Sender: FDA-Public Use
  Company Number: None

PATIENT
  Age: 61 Year
  Weight: 104.78 kg

DRUGS (1)
  1. STELARA [Suspect]
     Active Substance: USTEKINUMAB
     Indication: PSORIASIS
     Dosage: INJECT 90MG SUBCUTANEOUSLY EVERY 12 WEEKS AS DIRECTED
     Route: 058
     Dates: start: 201801

REACTIONS (1)
  - Rash [None]
